FAERS Safety Report 6839334-X (Version None)
Quarter: 2010Q3

REPORT INFORMATION
  Report Type: 
  Country: None (occurrence: None)
  Receive Date: 20100714
  Receipt Date: 20100701
  Transmission Date: 20110219
  Serious: Yes (Hospitalization, Other)
  Sender: FDA-Public Use
  Company Number: PHFR2010IE00485

PATIENT
  Sex: Male

DRUGS (6)
  1. CLOZARIL [Suspect]
     Indication: SCHIZOPHRENIA
     Dosage: 325 MG, UNK
     Route: 048
     Dates: start: 20031002
  2. CLOZARIL [Suspect]
     Dosage: 750 MG, UNK
  3. ISTIN [Concomitant]
  4. CHLORPROMAZINE [Concomitant]
     Dosage: 50 MG, UNK
  5. SULPIRIDE [Concomitant]
     Dosage: 250 MG, PRN
  6. AKINETON [Concomitant]
     Dosage: 2 MG, BID

REACTIONS (6)
  - BENIGN PROSTATIC HYPERPLASIA [None]
  - MALAISE [None]
  - NEUROLEPTIC MALIGNANT SYNDROME [None]
  - NEUROLOGICAL SYMPTOM [None]
  - URINARY RETENTION [None]
  - URINARY TRACT INFECTION [None]
